FAERS Safety Report 14205158 (Version 1)
Quarter: 2017Q4

REPORT INFORMATION
  Report Type: Spontaneous
  Country: US (occurrence: US)
  Receive Date: 20171120
  Receipt Date: 20171120
  Transmission Date: 20180321
  Serious: No
  Sender: FDA-Public Use
  Company Number: US-3M HEALTH CARE-USEN-ANYUHB

PATIENT

DRUGS (1)
  1. DURAPREP [Suspect]
     Active Substance: IODINE POVACRYLEX\ISOPROPYL ALCOHOL
     Indication: PREOPERATIVE CARE
     Dosage: 6 ML MILLILITRE(S), SINGLE
     Route: 061
     Dates: start: 20170707, end: 20170707

REACTIONS (1)
  - Wound [Unknown]

NARRATIVE: CASE EVENT DATE: 20170707
